FAERS Safety Report 12911615 (Version 1)
Quarter: 2016Q4

REPORT INFORMATION
  Report Type: Spontaneous
  Country: US (occurrence: US)
  Receive Date: 20161103
  Receipt Date: 20161103
  Transmission Date: 20170207
  Serious: No
  Sender: FDA-Public Use
  Company Number: None

PATIENT
  Age: 25 Year
  Sex: Male
  Weight: 101.25 kg

DRUGS (4)
  1. CLONAZEPAM. [Concomitant]
     Active Substance: CLONAZEPAM
  2. WELLBUTRIN XL GENERIC [Suspect]
     Active Substance: BUPROPION HYDROCHLORIDE
     Indication: DEPRESSION
     Dosage: ?          QUANTITY:1 TABLET(S);?
     Route: 048
     Dates: start: 20160905, end: 20161103
  3. INTUNIV [Concomitant]
     Active Substance: GUANFACINE HYDROCHLORIDE
  4. WELLBUTRIN XL [Concomitant]
     Active Substance: BUPROPION HYDROCHLORIDE

REACTIONS (1)
  - Mood swings [None]

NARRATIVE: CASE EVENT DATE: 20161102
